FAERS Safety Report 19333089 (Version 1)
Quarter: 2021Q2

REPORT INFORMATION
  Report Type: Spontaneous
  Country: US (occurrence: US)
  Receive Date: 20210529
  Receipt Date: 20210529
  Transmission Date: 20210717
  Serious: No
  Sender: FDA-Public Use
  Company Number: US-LUPIN PHARMACEUTICALS INC.-2021-05378

PATIENT
  Age: 12 Year
  Sex: Female

DRUGS (18)
  1. TAZAROTENE. [Suspect]
     Active Substance: TAZAROTENE
     Indication: DERMATITIS ACNEIFORM
  2. IMIQUIMOD. [Concomitant]
     Active Substance: IMIQUIMOD
     Indication: PRODUCT USED FOR UNKNOWN INDICATION
     Dosage: UNK
     Route: 061
  3. MINOCYCLINE [Suspect]
     Active Substance: MINOCYCLINE HYDROCHLORIDE
     Indication: MOLLUSCUM CONTAGIOSUM
  4. ADAPALENE. [Concomitant]
     Active Substance: ADAPALENE
     Indication: FOLLICULAR MUCINOSIS
     Dosage: UNK
     Route: 061
  5. CLOCORTOLONE [Concomitant]
     Indication: PRODUCT USED FOR UNKNOWN INDICATION
     Dosage: UNK
     Route: 065
  6. TRIAMCINOLONE [Suspect]
     Active Substance: TRIAMCINOLONE
     Indication: MOLLUSCUM CONTAGIOSUM
  7. MINOCYCLINE [Suspect]
     Active Substance: MINOCYCLINE HYDROCHLORIDE
     Indication: ACNE
     Dosage: UNK
     Route: 048
  8. DAPSONE. [Suspect]
     Active Substance: DAPSONE
     Indication: DERMATITIS ACNEIFORM
  9. BENZOYL PEROXIDE. [Suspect]
     Active Substance: BENZOYL PEROXIDE
     Indication: FOLLICULAR MUCINOSIS
     Dosage: UNK
     Route: 065
  10. HYDROXYCHLOROQUINE [Suspect]
     Active Substance: HYDROXYCHLOROQUINE
     Indication: FOLLICULAR MUCINOSIS
     Dosage: 6 MILLIGRAM/KILOGRAM, QD
     Route: 065
  11. TRETINOIN. [Suspect]
     Active Substance: TRETINOIN
     Indication: MOLLUSCUM CONTAGIOSUM
  12. DAPSONE. [Suspect]
     Active Substance: DAPSONE
     Indication: FOLLICULAR MUCINOSIS
     Dosage: UNK
     Route: 065
  13. TAZAROTENE. [Suspect]
     Active Substance: TAZAROTENE
     Indication: FOLLICULAR MUCINOSIS
     Dosage: UNK
     Route: 061
  14. TRETINOIN. [Suspect]
     Active Substance: TRETINOIN
     Indication: ACNE
     Dosage: UNK
     Route: 065
  15. BENZOYL PEROXIDE. [Suspect]
     Active Substance: BENZOYL PEROXIDE
     Indication: DERMATITIS ACNEIFORM
  16. CLINDAMYCIN. [Concomitant]
     Active Substance: CLINDAMYCIN
     Indication: PRODUCT USED FOR UNKNOWN INDICATION
     Dosage: UNK
     Route: 065
  17. TRIAMCINOLONE [Suspect]
     Active Substance: TRIAMCINOLONE
     Indication: ACNE
     Dosage: UNK
     Route: 026
  18. HYDROXYCHLOROQUINE [Suspect]
     Active Substance: HYDROXYCHLOROQUINE
     Indication: DERMATITIS ACNEIFORM

REACTIONS (1)
  - Drug ineffective [Unknown]
